FAERS Safety Report 5005596-7 (Version None)
Quarter: 2006Q2

REPORT INFORMATION
  Report Type: 
  Country: None (occurrence: None)
  Receive Date: 20060515
  Receipt Date: 20060508
  Transmission Date: 20061013
  Serious: Yes (Hospitalization)
  Sender: FDA-Public Use
  Company Number: BR-2006-011258

PATIENT
  Age: 28 Year
  Sex: Female

DRUGS (1)
  1. BETASERON [Suspect]
     Indication: MULTIPLE SCLEROSIS
     Dosage: 1 ML, SUBCUTANEOUS
     Route: 058
     Dates: start: 20040101, end: 20060401

REACTIONS (2)
  - DIFFICULTY IN WALKING [None]
  - MUSCULAR WEAKNESS [None]
